FAERS Safety Report 9646257 (Version 2)
Quarter: 2013Q4

REPORT INFORMATION
  Report Type: Report from Study
  Country: TW (occurrence: TW)
  Receive Date: 20131025
  Receipt Date: 20131025
  Transmission Date: 20140711
  Serious: Yes (Hospitalization, Disabling)
  Sender: FDA-Public Use
  Company Number: TW-B.I. PHARMACEUTICALS,INC./RIDGEFIELD-2013-BI-25816BI

PATIENT
  Age: 63 Year
  Sex: Male
  Weight: 57 kg

DRUGS (17)
  1. BIBW 2992 [Suspect]
     Indication: NON-SMALL CELL LUNG CANCER
     Dosage: 30 MG
     Route: 048
     Dates: start: 20130529, end: 20130817
  2. TERBUTALINE [Concomitant]
     Indication: BRONCHOSPASM
     Dosage: DOSE: 5MG/2 ML/ NEBULE
     Route: 055
     Dates: start: 20130821, end: 20130909
  3. IPRATROPIUM NEBULIZER [Concomitant]
     Indication: BRONCHOSPASM
     Dosage: DOSE: 500 MCG/ 2 ML
     Route: 055
     Dates: start: 20130821, end: 20130909
  4. ULTRACET [Concomitant]
     Indication: PAIN
     Dosage: 325 MG
     Route: 048
     Dates: start: 20130830, end: 20130918
  5. ACETYLSALICYLATE [Concomitant]
     Indication: PAIN
     Dosage: 250 MG
     Route: 042
     Dates: start: 20130830, end: 20130918
  6. ACETYLSALICYLATE [Concomitant]
     Indication: PYREXIA
  7. METHYLPREDNISOLONE [Concomitant]
     Indication: PNEUMONIA
     Dosage: 40 MG
     Route: 042
     Dates: start: 20130826, end: 20130909
  8. METHYLPREDNISOLONE [Concomitant]
     Indication: BRONCHOSPASM
  9. ACETAMINOPHEN [Concomitant]
     Indication: PAIN
     Dosage: 500 MG
     Route: 048
     Dates: start: 20130902, end: 20130909
  10. ACETAMINOPHEN [Concomitant]
     Indication: PYREXIA
  11. CODIEINE [Concomitant]
     Indication: COUGH
     Dosage: 120 ML
     Route: 048
     Dates: start: 20130905, end: 20130907
  12. CODIEINE [Concomitant]
     Dosage: 18 MG
     Route: 048
  13. DEXTROMETHORPHAN [Concomitant]
     Indication: COUGH
     Dosage: 45 MG
     Route: 048
     Dates: start: 20130907, end: 20130918
  14. EPINEPHRINE [Concomitant]
     Indication: HAEMOPTYSIS
     Dosage: 4 MG
     Route: 055
     Dates: start: 20130907, end: 20130908
  15. TRANEXAMIC ACID [Concomitant]
     Indication: HAEMOPTYSIS
     Dosage: 750 MG
     Route: 048
     Dates: start: 20130907, end: 20130918
  16. DOMPERIDONE [Concomitant]
     Indication: DYSPEPSIA
     Dosage: 30 MG
     Route: 048
     Dates: start: 20130907, end: 20130918
  17. TRIAZOLAM [Concomitant]
     Indication: INSOMNIA
     Dosage: 0.25 MG
     Route: 048
     Dates: start: 20130907, end: 20130918

REACTIONS (2)
  - Pneumonia [Recovered/Resolved]
  - Tracheo-oesophageal fistula [Recovered/Resolved]
